FAERS Safety Report 6614041-7 (Version None)
Quarter: 2010Q1

REPORT INFORMATION
  Report Type: 
  Country: None (occurrence: None)
  Receive Date: 20100303
  Receipt Date: 20100303
  Transmission Date: 20100710
  Serious: Yes (Life-Threatening, Hospitalization, Other)
  Sender: FDA-Public Use
  Company Number: None

PATIENT
  Age: 85 Year
  Sex: Male
  Weight: 58.9676 kg

DRUGS (7)
  1. VICODIN [Suspect]
     Indication: PAIN
     Dosage: PO
     Route: 048
  2. DILAUDID [Suspect]
     Indication: PAIN
     Dosage: IV
     Route: 042
  3. METFORMIN HYDROCHLORIDE [Concomitant]
  4. GILPIZIDE [Concomitant]
  5. INSULIN [Concomitant]
  6. LEVAQUIN [Concomitant]
  7. CLINDAMYCIN [Concomitant]

REACTIONS (10)
  - ACTIVITIES OF DAILY LIVING IMPAIRED [None]
  - ATAXIA [None]
  - BLOOD PRESSURE DECREASED [None]
  - CACHEXIA [None]
  - DISORIENTATION [None]
  - DIZZINESS [None]
  - LIP DRY [None]
  - PAIN [None]
  - POSTURING [None]
  - TARDIVE DYSKINESIA [None]
